FAERS Safety Report 23743290 (Version 2)
Quarter: 2024Q2

REPORT INFORMATION
  Report Type: Spontaneous
  Country: US (occurrence: US)
  Receive Date: 20240415
  Receipt Date: 20240516
  Transmission Date: 20240716
  Serious: Yes (Other)
  Sender: FDA-Public Use
  Company Number: US-ORGANON-O2404USA001645

PATIENT
  Age: 26 Year
  Sex: Female

DRUGS (2)
  1. NEXPLANON [Suspect]
     Active Substance: ETONOGESTREL
     Indication: Contraception
     Dosage: 1 IMPLANT (68 MG) (LEFT UPPER ARM)
     Route: 059
     Dates: start: 20240326, end: 20240514
  2. NEXPLANON [Concomitant]
     Active Substance: ETONOGESTREL
     Indication: Contraception
     Dosage: 1 IMPLANT
     Dates: end: 20240326

REACTIONS (3)
  - Ulnar nerve injury [Recovering/Resolving]
  - Pain [Recovering/Resolving]
  - Complication of device removal [Recovered/Resolved]

NARRATIVE: CASE EVENT DATE: 20240326
